FAERS Safety Report 8817726 (Version 1)
Quarter: 2012Q4

REPORT INFORMATION
  Report Type: 
  Country: US (occurrence: US)
  Receive Date: 20121001
  Receipt Date: 20121001
  Transmission Date: 20130627
  Serious: No
  Sender: FDA-Public Use
  Company Number: US-PFIZER INC-2012241750

PATIENT
  Age: 52 Year
  Sex: Male
  Weight: 85.71 kg

DRUGS (4)
  1. LYRICA [Suspect]
     Indication: INTERVERTEBRAL DISC DEGENERATION
     Dosage: 50 mg, 2x/day
     Route: 048
     Dates: start: 2010, end: 201011
  2. LYRICA [Suspect]
     Indication: NERVE INJURY
     Dosage: 75 mg, 3x/day
     Route: 048
     Dates: start: 201011, end: 201209
  3. LYRICA [Suspect]
     Indication: NEURALGIA
     Dosage: 75 mg, 3x/day
     Route: 048
     Dates: start: 201209
  4. HYDROCODONE [Concomitant]
     Dosage: UNK, as needed

REACTIONS (3)
  - Pain [Unknown]
  - Vertigo [Recovered/Resolved]
  - Somnolence [Unknown]
